FAERS Safety Report 13151211 (Version 1)
Quarter: 2017Q1

REPORT INFORMATION
  Report Type: Spontaneous
  Country: US (occurrence: US)
  Receive Date: 20170119
  Receipt Date: 20170119
  Transmission Date: 20170428
  Serious: Yes (Hospitalization, Other)
  Sender: FDA-Public Use
  Company Number: None

PATIENT
  Age: 63 Year
  Sex: Male

DRUGS (10)
  1. HUMIRA [Suspect]
     Active Substance: ADALIMUMAB
     Indication: ANKYLOSING SPONDYLITIS
     Dosage: ?          OTHER FREQUENCY:EVERY OTHER WEEK;?
     Route: 058
     Dates: start: 20121015, end: 20170112
  2. AMLODIPINE BESYLATE. [Concomitant]
     Active Substance: AMLODIPINE BESYLATE
  3. BYSTOLIC [Concomitant]
     Active Substance: NEBIVOLOL HYDROCHLORIDE
  4. MELOXICAM. [Concomitant]
     Active Substance: MELOXICAM
  5. NAPROXEN. [Concomitant]
     Active Substance: NAPROXEN
  6. CYCLOBENZAPRINE [Concomitant]
     Active Substance: CYCLOBENZAPRINE
  7. SCOPALAMINE [Concomitant]
     Active Substance: SCOPOLAMINE
  8. DUREZOL 0.05% EYE DROPS [Concomitant]
  9. TRIBENZOR [Concomitant]
     Active Substance: AMLODIPINE BESYLATE\HYDROCHLOROTHIAZIDE\OLMESARTAN MEDOXOMIL
  10. CLOBETASOL 0.05% OINTMENT [Concomitant]

REACTIONS (1)
  - Pulmonary embolism [None]

NARRATIVE: CASE EVENT DATE: 20170112
